FAERS Safety Report 6752902-9 (Version None)
Quarter: 2010Q2

REPORT INFORMATION
  Report Type: 
  Country: None (occurrence: None)
  Receive Date: 20100602
  Receipt Date: 20100602
  Transmission Date: 20101027
  Serious: Yes (Other)
  Sender: FDA-Public Use
  Company Number: None

PATIENT
  Age: 69 Year
  Sex: Female

DRUGS (1)
  1. LIDOCAINE [Suspect]
     Indication: JOINT INJECTION
     Dosage: 5 ML ONCE IM
     Route: 030
     Dates: start: 20100127

REACTIONS (4)
  - FEELING ABNORMAL [None]
  - FLUSHING [None]
  - HEART RATE INCREASED [None]
  - LATEX ALLERGY [None]
